FAERS Safety Report 23576978 (Version 1)
Quarter: 2024Q1

REPORT INFORMATION
  Report Type: Spontaneous
  Country: US (occurrence: US)
  Receive Date: 20240228
  Receipt Date: 20240228
  Transmission Date: 20240410
  Serious: No
  Sender: FDA-Public Use
  Company Number: US-KARYOPHARM-2023KPT002009

PATIENT

DRUGS (18)
  1. XPOVIO [Suspect]
     Active Substance: SELINEXOR
     Indication: Plasma cell myeloma
     Dosage: 60 MG, WEEKLY
     Route: 048
     Dates: start: 20230907, end: 202310
  2. XPOVIO [Suspect]
     Active Substance: SELINEXOR
     Dosage: 60 MG, WEEKLY
     Route: 048
     Dates: start: 202310
  3. SULFAMETHOXAZOLE AND TRIMETHOPRIM [Concomitant]
     Active Substance: SULFAMETHOXAZOLE\TRIMETHOPRIM
  4. VALACYCLOVIR HYDROCHLORIDE [Concomitant]
     Active Substance: VALACYCLOVIR HYDROCHLORIDE
  5. ZOFRAN [Concomitant]
     Active Substance: ONDANSETRON HYDROCHLORIDE
  6. PROCHLORPERAZINE [Concomitant]
     Active Substance: PROCHLORPERAZINE
  7. POMALYST [Concomitant]
     Active Substance: POMALIDOMIDE
  8. DEXAMETHASONE [Concomitant]
     Active Substance: DEXAMETHASONE
  9. ATORVASTATIN [Concomitant]
     Active Substance: ATORVASTATIN
  10. CALCITONIN [Concomitant]
     Active Substance: CALCITONIN
  11. DULOXETINE [Concomitant]
     Active Substance: DULOXETINE
  12. LORAZEPAM [Concomitant]
     Active Substance: LORAZEPAM
  13. LOSARTAN [Concomitant]
     Active Substance: LOSARTAN
  14. METOPROLOL [Concomitant]
     Active Substance: METOPROLOL
  15. NALOXONE [Concomitant]
     Active Substance: NALOXONE
  16. OXYCODONE AND ACETAMINOPHEN [Concomitant]
     Active Substance: ACETAMINOPHEN\OXYCODONE HYDROCHLORIDE
  17. XARELTO [Concomitant]
     Active Substance: RIVAROXABAN
  18. ROPINIROLE [Concomitant]
     Active Substance: ROPINIROLE

REACTIONS (3)
  - Laboratory test abnormal [Unknown]
  - Nausea [Not Recovered/Not Resolved]
  - Diarrhoea [Not Recovered/Not Resolved]

NARRATIVE: CASE EVENT DATE: 20230101
